FAERS Safety Report 7306204-2 (Version None)
Quarter: 2011Q1

REPORT INFORMATION
  Report Type: 
  Country: None (occurrence: None)
  Receive Date: 20110222
  Receipt Date: 20110207
  Transmission Date: 20110831
  Serious: Yes (Hospitalization, Other)
  Sender: FDA-Public Use
  Company Number: PHHY2011GB07217

PATIENT
  Age: 36 Year
  Sex: Female

DRUGS (12)
  1. INDOMETHACIN [Suspect]
  2. DICLOFENAC [Concomitant]
     Indication: MIGRAINE
  3. DIAZEPAM [Concomitant]
  4. NIMODIPINE [Concomitant]
     Dosage: 30 MG, 5QD, FOR TWO WEEKS
  5. GABAPENTIN [Suspect]
  6. PARACETAMOL [Concomitant]
  7. METHYLPREDNISOLONE [Concomitant]
     Route: 042
  8. DEXAMETHASONE [Concomitant]
  9. PROPRANOLOL [Concomitant]
  10. TRAMADOL HCL [Concomitant]
     Indication: MIGRAINE
  11. SUMATRIPTAN [Concomitant]
  12. ACYCLOVIR [Concomitant]

REACTIONS (14)
  - VERTIGO [None]
  - MYOCLONUS [None]
  - ATAXIA [None]
  - ALTERED VISUAL DEPTH PERCEPTION [None]
  - CSF TEST ABNORMAL [None]
  - DEMYELINATION [None]
  - CEREBROVASCULAR SPASM [None]
  - CONFUSIONAL STATE [None]
  - VASCULITIS [None]
  - PERONEAL NERVE PALSY [None]
  - DYSPRAXIA [None]
  - HEADACHE [None]
  - SENSORY LOSS [None]
  - CSF PRESSURE INCREASED [None]
